FAERS Safety Report 19943848 (Version 1)
Quarter: 2021Q4

REPORT INFORMATION
  Report Type: Report from Study
  Country: US (occurrence: US)
  Receive Date: 20211012
  Receipt Date: 20211012
  Transmission Date: 20220303
  Serious: Yes (Other)
  Sender: FDA-Public Use
  Company Number: US-MERCK HEALTHCARE KGAA-9270779

PATIENT
  Age: 61 Year
  Sex: Female

DRUGS (10)
  1. REBIF [Suspect]
     Active Substance: INTERFERON BETA-1A
     Indication: Multiple sclerosis
     Route: 058
     Dates: start: 2000
  2. REBIF [Suspect]
     Active Substance: INTERFERON BETA-1A
     Route: 058
  3. LIPITOR [Concomitant]
     Active Substance: ATORVASTATIN CALCIUM
     Indication: Product used for unknown indication
     Route: 048
  4. VITAMIN D3 [Concomitant]
     Active Substance: CHOLECALCIFEROL
     Indication: Product used for unknown indication
     Dosage: 2000 UNIT
     Route: 048
  5. CELEXA [Concomitant]
     Active Substance: CITALOPRAM HYDROBROMIDE
     Indication: Product used for unknown indication
     Route: 048
  6. VITAMIN B12 [Concomitant]
     Active Substance: CYANOCOBALAMIN
     Indication: Product used for unknown indication
     Dosage: 1000 MCG/ML
  7. FERROUS SULFATE [Concomitant]
     Active Substance: FERROUS SULFATE
     Indication: Product used for unknown indication
     Route: 048
  8. HYDRODIURIL [Concomitant]
     Active Substance: HYDROCHLOROTHIAZIDE
     Indication: Product used for unknown indication
     Dosage: EVERY OTHER DAY IN THE MORNING
  9. MACROBID [Concomitant]
     Active Substance: NITROFURANTOIN\NITROFURANTOIN MONOHYDRATE
     Indication: Product used for unknown indication
     Route: 048
  10. LIORESAL [Concomitant]
     Active Substance: BACLOFEN
     Indication: Muscle spasticity
     Dosage: 2 TABLETS IN THE MORNING AND 3 TABLETS IN THE AFTERNOON
     Route: 048

REACTIONS (2)
  - Basal cell carcinoma [Unknown]
  - Neoplasm skin [Unknown]
